FAERS Safety Report 7828876-6 (Version None)
Quarter: 2011Q4

REPORT INFORMATION
  Report Type: 
  Country: None (occurrence: None)
  Receive Date: 20111020
  Receipt Date: 20111007
  Transmission Date: 20120403
  Serious: Yes (Hospitalization, Disabling)
  Sender: FDA-Public Use
  Company Number: US-BAYER-2011-037688

PATIENT
  Age: 23 Year
  Sex: Female
  Weight: 68 kg

DRUGS (1)
  1. YAZ [Suspect]
     Indication: CONTRACEPTION
     Dosage: UNK
     Route: 048
     Dates: start: 20060101, end: 20100101

REACTIONS (9)
  - EMOTIONAL DISTRESS [None]
  - PAIN [None]
  - CHOLECYSTECTOMY [None]
  - CHOLECYSTITIS [None]
  - INJURY [None]
  - ANXIETY [None]
  - ORGAN FAILURE [None]
  - ANHEDONIA [None]
  - GENERAL PHYSICAL HEALTH DETERIORATION [None]
